FAERS Safety Report 7355896-0 (Version None)
Quarter: 2011Q1

REPORT INFORMATION
  Report Type: 
  Country: None (occurrence: None)
  Receive Date: 20110316
  Receipt Date: 20101101
  Transmission Date: 20110831
  Serious: No
  Sender: FDA-Public Use
  Company Number: US-BAYER-201023391BCC

PATIENT
  Sex: Male
  Weight: 90.909 kg

DRUGS (10)
  1. HYDROCHLOROTHIAZIDE [Concomitant]
  2. ASPIRIN [Concomitant]
  3. ALEVE [Suspect]
     Dosage: BOTTLE COUNT 130
     Route: 048
     Dates: start: 20101031, end: 20101031
  4. ALEVE [Suspect]
     Dosage: HE TOOK 220 MG AT 7 AM AND 440MG AT 1:15 PM
     Route: 048
     Dates: start: 20101101
  5. NADOLOL [Concomitant]
  6. UNCODEABLE ^UNCLASSIFIABLE^ [Concomitant]
  7. KDUR [Concomitant]
  8. LISINOPRIL [Concomitant]
  9. ALLOPURINOL [Concomitant]
  10. GEMFIBROZIL [Concomitant]

REACTIONS (1)
  - NO ADVERSE EVENT [None]
